FAERS Safety Report 5868407-3 (Version None)
Quarter: 2008Q3

REPORT INFORMATION
  Report Type: 
  Country: None (occurrence: None)
  Receive Date: 20080828
  Receipt Date: 20080818
  Transmission Date: 20090109
  Serious: Yes (Other)
  Sender: FDA-Public Use
  Company Number: TRP_05860_2008

PATIENT
  Sex: Male

DRUGS (2)
  1. RIBAVIRIN [Suspect]
     Indication: HEPATITIS C VIRUS TEST
     Dosage: (1000 MG ORAL)
     Route: 048
     Dates: start: 20080126
  2. PEGASYS [Suspect]
     Indication: HEPATITIS C VIRUS TEST
     Dosage: (180 ?G 1X/WEEK SUBCUTANEOUS)
     Route: 058
     Dates: start: 20080126

REACTIONS (8)
  - DRUG INEFFECTIVE [None]
  - EYE DISCHARGE [None]
  - HAEMOGLOBIN DECREASED [None]
  - IMPETIGO [None]
  - METHICILLIN-RESISTANT STAPHYLOCOCCAL AUREUS TEST POSITIVE [None]
  - OCULAR HYPERAEMIA [None]
  - THERAPY NAIVE [None]
  - WHITE BLOOD CELL COUNT DECREASED [None]
